FAERS Safety Report 6069122-6 (Version None)
Quarter: 2009Q1

REPORT INFORMATION
  Report Type: 
  Country: None (occurrence: None)
  Receive Date: 20090206
  Receipt Date: 20090130
  Transmission Date: 20090719
  Serious: Yes (Hospitalization, Other)
  Sender: FDA-Public Use
  Company Number: AU-ELI_LILLY_AND_COMPANY-AU200809001344

PATIENT
  Age: 16 Year
  Sex: Female

DRUGS (3)
  1. PROZAC [Suspect]
     Indication: ANXIETY
  2. ZOLOFT [Concomitant]
     Dosage: UNK, UNK
     Dates: start: 20071001, end: 20070101
  3. EUCALYPTUS OIL [Concomitant]
     Dosage: 200 ML, UNK
     Dates: start: 20070101

REACTIONS (19)
  - ANXIETY [None]
  - BLOOD PRESSURE INCREASED [None]
  - CEREBRAL CYST [None]
  - CONVULSION [None]
  - DIARRHOEA [None]
  - HEADACHE [None]
  - HYPERHIDROSIS [None]
  - HYPERTENSION [None]
  - MENORRHAGIA [None]
  - NAUSEA [None]
  - NERVOUS SYSTEM DISORDER [None]
  - OVERDOSE [None]
  - POLYCYSTIC OVARIES [None]
  - PSYCHOTIC DISORDER [None]
  - SEROTONIN SYNDROME [None]
  - SLEEP DISORDER [None]
  - SLEEP TERROR [None]
  - SUICIDAL BEHAVIOUR [None]
  - TREMOR [None]
